FAERS Safety Report 5025674-6 (Version None)
Quarter: 2006Q2

REPORT INFORMATION
  Report Type: 
  Country: None (occurrence: None)
  Receive Date: 20060427
  Receipt Date: 20050606
  Transmission Date: 20061013
  Serious: Yes (Other)
  Sender: FDA-Public Use
  Company Number: 2005069907

PATIENT
  Age: 53 Year
  Sex: Female
  Weight: 83.4619 kg

DRUGS (8)
  1. ZITHROMAX [Suspect]
     Indication: BRONCHITIS
     Dosage: SEE IMAGE
     Route: 048
     Dates: start: 20050416, end: 20050420
  2. ZITHROMAX [Suspect]
     Indication: INFLUENZA LIKE ILLNESS
     Dosage: SEE IMAGE
     Route: 048
     Dates: start: 20050416, end: 20050420
  3. BENADRYL [Concomitant]
  4. OXYBUTYN (OXYBUTYNIN HYDROCHLORIDE) [Concomitant]
  5. MVI 3 (BIOTIN, CYANOCOBALAMIN, FOLIC ACID) [Concomitant]
  6. CALCIUM WITH VITAMIN D (CALCIUM PHOSPHATE, CALCIUM SODIUM LACTATE, ERG [Concomitant]
  7. DITROPAN [Concomitant]
  8. VITAMINS (VITAMINS) [Concomitant]

REACTIONS (1)
  - URTICARIA [None]
